FAERS Safety Report 9552125 (Version 1)
Quarter: 2013Q3

REPORT INFORMATION
  Report Type: Spontaneous
  Country: US (occurrence: None)
  Receive Date: 20130724
  Receipt Date: 20130724
  Transmission Date: 20140515
  Serious: Yes (Hospitalization)
  Sender: FDA-Public Use
  Company Number: PHEH2013US010051

PATIENT
  Age: 20 Year
  Sex: Male

DRUGS (1)
  1. AFINITOR [Suspect]
     Indication: ANGIOMYOLIPOMA
     Dates: start: 20130419, end: 20130503

REACTIONS (5)
  - Hypersensitivity [None]
  - Oedema [None]
  - Epistaxis [None]
  - Abdominal pain [None]
  - Dyspnoea [None]
